FAERS Safety Report 9188526 (Version 2)
Quarter: 2013Q2

REPORT INFORMATION
  Report Type: Spontaneous
  Country: US (occurrence: US)
  Receive Date: 20130325
  Receipt Date: 20130418
  Transmission Date: 20140414
  Serious: Yes (Hospitalization)
  Sender: FDA-Public Use
  Company Number: US-ABBOTT-13P-163-1064443-00

PATIENT
  Age: 47 Year
  Sex: Female
  Weight: 90.8 kg

DRUGS (6)
  1. HUMIRA [Suspect]
     Indication: PSORIATIC ARTHROPATHY
     Dates: start: 2008, end: 2009
  2. HUMIRA [Suspect]
     Indication: PSORIASIS
     Dates: start: 20130314
  3. METHOTREXATE [Suspect]
     Indication: PRODUCT USED FOR UNKNOWN INDICATION
     Dates: start: 2008, end: 2009
  4. LYRICA [Concomitant]
     Indication: PSORIATIC ARTHROPATHY
  5. CARAFATE [Concomitant]
     Indication: GASTRIC DISORDER
  6. POTASSIUM [Concomitant]
     Indication: MINERAL SUPPLEMENTATION

REACTIONS (7)
  - Intervertebral disc protrusion [Recovered/Resolved]
  - Incision site haematoma [Recovered/Resolved]
  - Peripheral nerve injury [Recovered/Resolved]
  - Injection site pain [Not Recovered/Not Resolved]
  - Malaise [Recovered/Resolved]
  - Nausea [Recovered/Resolved]
  - Device malfunction [Not Recovered/Not Resolved]
